FAERS Safety Report 18551914 (Version 1)
Quarter: 2020Q4

REPORT INFORMATION
  Report Type: Spontaneous
  Country: PK (occurrence: PK)
  Receive Date: 20201126
  Receipt Date: 20201126
  Transmission Date: 20210114
  Serious: Yes (Other)
  Sender: FDA-Public Use
  Company Number: PK-AMGEN-PAKSP2020146724

PATIENT
  Sex: Male

DRUGS (20)
  1. OXYCLOR [Concomitant]
     Dosage: 1.5 DOSAGE FORM, QD
  2. DELTACORTRIL [Concomitant]
     Active Substance: PREDNISOLONE
     Dosage: 1.5 DOSAGE FORM, QD
  3. ENBREL [Suspect]
     Active Substance: ETANERCEPT
     Indication: RHEUMATOID ARTHRITIS
     Dosage: 50 MILLIGRAM, QWK
     Route: 058
  4. NEUROMET [FOLIC ACID;MECOBALAMIN;PYRIDOXINE HYDROCHLORIDE;THIOCTIC ACI [Concomitant]
     Dosage: UNK, 2X/DAY (ONE MORNING ONE EVENING)
  5. NEZKIL [Concomitant]
     Dosage: UNK (TAKE 1 TABLET IN MORNING AND ONE TABLET IN EVENING FOR 5 DAYS THEN STOP)
  6. FUCIDIN [FUSIDATE SODIUM] [Concomitant]
     Active Substance: FUSIDATE SODIUM
     Dosage: UNK, 2X/DAY/ APPLY ON NERVES MORNING AND EVENING FOR 2 WEEKS
  7. NEOGAB [Concomitant]
     Dosage: 1 DF, 2X/DAY (ONE MORNING ONE EVENING)
  8. CENTRUM SILVER MEN 50+ [Concomitant]
     Active Substance: MINERALS\VITAMINS
     Dosage: 1 DF, 1X/DAY/ TAKE ONE TABLET AFTER BREAKFAST
  9. KETOSTERIL [Concomitant]
     Active Substance: AMINO ACIDS, SOURCE UNSPECIFIED
     Dosage: 1 TABLET , 2X/DAY (1 TABLET MORNING 1 TABLET EVENING)
  10. CAC [Concomitant]
     Dosage: UNK, 1X/DAY (IN EVENING)
  11. LOSEC [Concomitant]
     Active Substance: OMEPRAZOLE
     Dosage: UNK, 2X/DAY/ TAKE CAPSULE IN MORNING AND EVENING HALF AN HOUR BEFORE MEAL
  12. SALAZOPYRINE [Concomitant]
     Active Substance: SULFASALAZINE
     Dosage: 3 DF, 2X/DAY (3 MORNING +3 EVENING)
  13. FOLIC ACID. [Concomitant]
     Active Substance: FOLIC ACID
     Dosage: UNK, QD
  14. D-DROPS [Concomitant]
     Dosage: UNK, QMO
  15. LEFORA [Concomitant]
     Dosage: 10 MG, ALTERNATE DAY/ TAKE HALF TABLET ON AN ALTERNATE DAY
     Dates: start: 20201109
  16. SINAXAMOL PLUS [Concomitant]
     Dosage: 1 DF, 2X/DAY/ TAKE 1 TABLET IN MORNING AND ONE TABLET IN EVENING
  17. OXYCLOR [Concomitant]
     Dosage: 1 DF, 2X/DAY (ONE MORNING +ONE EVENING)
  18. DELTACORTRIL [Concomitant]
     Active Substance: PREDNISOLONE
     Dosage: 3 DF, DAILY (TWO MORNING+ONE EVENING)
  19. DELTACORTRIL [Concomitant]
     Active Substance: PREDNISOLONE
     Dosage: 1 DOSAGE FORM, QD
  20. NEXIUM [Concomitant]
     Active Substance: ESOMEPRAZOLE MAGNESIUM
     Dosage: HALF AN HOUR EARLIER BEFORE BREAKFAST

REACTIONS (12)
  - Disease recurrence [Unknown]
  - Bone cyst [Unknown]
  - Hepatic cirrhosis [Unknown]
  - Arthralgia [Unknown]
  - Synovial cyst [Unknown]
  - Swelling [Unknown]
  - Joint swelling [Unknown]
  - Muscle spasms [Unknown]
  - Haemoglobin decreased [Unknown]
  - Red blood cell sedimentation rate increased [Unknown]
  - Bleeding varicose vein [Unknown]
  - Joint range of motion decreased [Unknown]

NARRATIVE: CASE EVENT DATE: 20201109
